FAERS Safety Report 6017120-0 (Version None)
Quarter: 2008Q4

REPORT INFORMATION
  Report Type: 
  Country: None (occurrence: None)
  Receive Date: 20081223
  Receipt Date: 20081212
  Transmission Date: 20090506
  Serious: Yes (Hospitalization, Other)
  Sender: FDA-Public Use
  Company Number: FR-JNJFOC-20080103547

PATIENT
  Age: 49 Year
  Sex: Female
  Weight: 68 kg

DRUGS (4)
  1. REMICADE [Suspect]
     Route: 042
  2. REMICADE [Suspect]
     Route: 042
  3. REMICADE [Suspect]
     Indication: CROHN'S DISEASE
     Route: 042
  4. TAREG [Concomitant]

REACTIONS (2)
  - ASCITES [None]
  - DISSEMINATED TUBERCULOSIS [None]
